FAERS Safety Report 9617766 (Version 2)
Quarter: 2013Q4

REPORT INFORMATION
  Report Type: Spontaneous
  Country: ES (occurrence: None)
  Receive Date: 20131009
  Receipt Date: 20131104
  Transmission Date: 20140711
  Serious: Yes (Death, Hospitalization)
  Sender: FDA-Public Use
  Company Number: SYM-2013-11339

PATIENT
  Age: 58 Year
  Sex: Female

DRUGS (14)
  1. 5-FU [Suspect]
     Indication: COLORECTAL CANCER METASTATIC
     Dosage: 589?MG,?EVERY OTHER WEEK, INTRAVENOUS BOLUS
     Route: 040
     Dates: start: 20130617, end: 20130617
  2. AFLIBERCEPT [Suspect]
     Indication: COLORECTAL CANCER METASTATIC
     Dosage: 200 MG, EVERY OTHER WEEK, INTRAVENOUS (NOT OTHERWISE SPECIFIED)
     Route: 042
     Dates: start: 20130617, end: 20130617
  3. IRINOTECAN [Suspect]
     Indication: COLORECTAL CANCER METASTATIC
     Dosage: 265 MG, EVERY OTHER WEEK, INTRAVENOUS
     Route: 042
     Dates: start: 20130617, end: 20130617
  4. LEUCOVORIN [Suspect]
     Indication: COLORECTAL CANCER METASTATIC
     Dosage: 589 MG, EVERY OTHER WEEK, INTRAVENOUS
     Route: 042
     Dates: start: 20130617, end: 20130617
  5. SINGULAIR [Concomitant]
  6. SPIRIVA [Suspect]
  7. CALCIUM CARBONATE [Concomitant]
  8. DACORTIN(PREDNISONE)(PREDNISONE) [Concomitant]
  9. RISEDRONIC ACID(RISEDRONIC ACID)(RISEDRONIC ACID) [Concomitant]
  10. OMEPRAZOLE(OMEPRAZOLE)(OMEPRAZOLE) [Concomitant]
  11. ANTICHOLINERGICS(ANTICHOLINERGICS) [Concomitant]
  12. SEROTONIN ANTAGONISTS [Suspect]
  13. CORTICOSTEROIDS(CORTICOSTEROIDS) [Concomitant]
  14. ANASMA(SERETIDE)(FLUTICASONE PROPIONATE, SALMETEROL XINAFOATE) [Concomitant]

REACTIONS (2)
  - Vomiting [None]
  - Diarrhoea [None]
